FAERS Safety Report 19774458 (Version 1)
Quarter: 2021Q3

REPORT INFORMATION
  Report Type: Report from Study
  Country: GB (occurrence: GB)
  Receive Date: 20210901
  Receipt Date: 20210901
  Transmission Date: 20211014
  Serious: Yes (Life-Threatening, Other)
  Sender: FDA-Public Use
  Company Number: GB-MYLANLABS-2021M1056918

PATIENT
  Age: 47 Year
  Sex: Female

DRUGS (31)
  1. NAPROXEN. [Concomitant]
     Active Substance: NAPROXEN
     Dosage: 56 TABLETS
     Dates: start: 20210205
  2. TOPIRAMATE. [Concomitant]
     Active Substance: TOPIRAMATE
     Dosage: 60 TABLETS
     Dates: start: 20210202
  3. PREGABALIN. [Concomitant]
     Active Substance: PREGABALIN
     Dosage: 50 MILLIGRAM, QD (56 CAPSULES)
     Route: 065
     Dates: start: 20210125
  4. EXOREX [Concomitant]
     Active Substance: COAL TAR
     Indication: PRURITUS
     Dosage: 100 MILLILITER
     Route: 065
     Dates: start: 20210111
  5. PARACETAMOL [Concomitant]
     Active Substance: ACETAMINOPHEN
     Dosage: 2000 MILLIGRAM, QD (100 TABLETS)
     Dates: start: 20210205
  6. STELARA [Suspect]
     Active Substance: USTEKINUMAB
     Indication: PSORIASIS
     Dosage: 45 MILLIGRAM (12 WEEK)
     Route: 058
     Dates: start: 20171008
  7. STELARA [Suspect]
     Active Substance: USTEKINUMAB
     Dosage: UNK
  8. FEXOFENADINE [Concomitant]
     Active Substance: FEXOFENADINE HYDROCHLORIDE
     Dosage: 120 MILLIGRAM, QD
     Dates: start: 20210202
  9. PROMETHAZINE HYDROCHLORIDE. [Concomitant]
     Active Substance: PROMETHAZINE HYDROCHLORIDE
     Dosage: 25 MILLIGRAM
     Dates: start: 20210202
  10. CARBOCISTEINE [Concomitant]
     Active Substance: CARBOCYSTEINE
     Dosage: 1125 MILLIGRAM, QD (168 CAPSULES)
     Dates: start: 20210202
  11. OXYBUTYNIN. [Concomitant]
     Active Substance: OXYBUTYNIN CHLORIDE
     Dosage: 5 MILLIGRAM (56 TABLETS)
     Dates: start: 20210202
  12. CHLORPHENIRAMINE                   /00072501/ [Concomitant]
     Active Substance: CHLORPHENIRAMINE
     Dosage: 12 MILLIGRAM, QD (56 TABLETS)
     Dates: start: 20210202
  13. FERROUS FUMARATE [Concomitant]
     Active Substance: FERROUS FUMARATE
     Dosage: 210 MILLIGRAM, QD
     Dates: start: 20210202
  14. COLECALCIFEROL [Concomitant]
     Active Substance: CHOLECALCIFEROL
     Dosage: 300 MILLILITER, QD (200 CAPSULES)
     Dates: start: 20201022
  15. PREDNISOLONE. [Concomitant]
     Active Substance: PREDNISOLONE
     Dosage: 30 MILLIGRAM, QD (42 TABLETS)
     Dates: start: 20210111
  16. HYPROMELLOSE [Concomitant]
     Active Substance: HYPROMELLOSES
     Dosage: 40 MILLILITER, QD
     Dates: start: 20210202
  17. AVAMYS [Concomitant]
     Active Substance: FLUTICASONE FUROATE
     Dosage: UNK
     Route: 045
     Dates: start: 20210202
  18. SUNSENSE AFTERSUN [Concomitant]
     Dosage: 75 GRAM, QD
     Dates: start: 20210202
  19. AZITHROMYCIN ANHYDROUS. [Concomitant]
     Active Substance: AZITHROMYCIN ANHYDROUS
     Dosage: 250 MILLIGRAM (12 TABLETS)
     Dates: start: 20210202
  20. CITALOPRAM [Concomitant]
     Active Substance: CITALOPRAM HYDROBROMIDE
     Dosage: 20 MILLIGRAM, QD
     Dates: start: 20210202
  21. MATRIFEN [Concomitant]
     Active Substance: FENTANYL
     Dosage: 1 UNK, 72 HOURS 12 MICRONES
     Dates: start: 20210202
  22. COLOFAC                            /00139402/ [Concomitant]
     Indication: ABDOMINAL DISTENSION
     Dosage: 405 MILLIGRAM, QD (84 TABLETS)
     Dates: start: 20191220
  23. XAMIOL                             /01643401/ [Concomitant]
     Indication: PSORIASIS
     Dosage: 60 GRAM, QD
     Dates: start: 20210111
  24. CALCIPOTRIOL [Concomitant]
     Active Substance: CALCIPOTRIENE
     Dosage: 60 MILLILITER, QD
     Dates: start: 20210202
  25. HYDROMOL                           /00906601/ [Concomitant]
     Dosage: 1500 GRAM, QD
  26. METRONIDAZOLE. [Suspect]
     Active Substance: METRONIDAZOLE
     Indication: PRODUCT USED FOR UNKNOWN INDICATION
     Dosage: UNK
     Route: 065
  27. PROCHLORPERAZINE. [Concomitant]
     Active Substance: PROCHLORPERAZINE
     Indication: DIZZINESS
     Dosage: 10 MILLIGRAM, QD (14 TABLETS)
  28. TRELEGY ELLIPTA [Concomitant]
     Active Substance: FLUTICASONE FUROATE\UMECLIDINIUM BROMIDE\VILANTEROL TRIFENATATE
     Dosage: UNK, QD
     Dates: start: 20210202
  29. SALBUTAMOL [Concomitant]
     Active Substance: ALBUTEROL
     Dosage: 200 DOSE
     Dates: start: 20210202
  30. OMEPRAZOLE. [Concomitant]
     Active Substance: OMEPRAZOLE
     Dosage: 20 MILLIGRAM, QD (28 CAPSULES)
     Dates: start: 20210202
  31. HYDROXYZINE [Concomitant]
     Active Substance: HYDROXYZINE HYDROCHLORIDE
     Dosage: 25 MILLIGRAM, QD
     Dates: start: 20210202

REACTIONS (16)
  - Migraine [Unknown]
  - Anaphylactic reaction [Unknown]
  - Rotator cuff syndrome [Unknown]
  - Bursitis [Unknown]
  - Diverticulitis [Unknown]
  - Bronchiectasis [Unknown]
  - Uterine leiomyoma [Unknown]
  - Psoriasis [Unknown]
  - Polyp [Recovered/Resolved]
  - Tinnitus [Unknown]
  - Suspected COVID-19 [Unknown]
  - Tendonitis [Unknown]
  - Presbyacusis [Unknown]
  - Hypersensitivity [Unknown]
  - Hyperthyroidism [Unknown]
  - Diverticulum intestinal [Unknown]

NARRATIVE: CASE EVENT DATE: 20171113
